FAERS Safety Report 6171299-9 (Version None)
Quarter: 2009Q2

REPORT INFORMATION
  Report Type: 
  Country: None (occurrence: None)
  Receive Date: 20090427
  Receipt Date: 20090415
  Transmission Date: 20091009
  Serious: Yes (Hospitalization, Other)
  Sender: FDA-Public Use
  Company Number: 2009AP001534

PATIENT
  Age: 78 Year
  Sex: Female

DRUGS (13)
  1. OMEPRAZOLE [Suspect]
     Indication: PROPHYLAXIS AGAINST GASTROINTESTINAL ULCER
     Dosage: 20 MG PO
     Route: 048
     Dates: start: 19990101, end: 20090220
  2. ASPIRIN [Concomitant]
  3. CALCIUM CARBONATE (CALCIUM CARBONATE) [Concomitant]
  4. FERROUS SULFATE TAB [Concomitant]
  5. ISOSORBIDE MONONITRATE [Concomitant]
  6. SIMVASTATIN [Concomitant]
  7. TIOTROPIUM BROMIDE (TIOTROPIUM BROMIDE) [Concomitant]
  8. BUDESONIDE [Concomitant]
  9. FORMOTEROL FUMARATE (FORMOTEROL FUMARATE) [Concomitant]
  10. THEOPHYLLINE [Concomitant]
  11. CALCIUM (CALCIUM) [Concomitant]
  12. MAGNESIUM (MAGNESIUM) [Concomitant]
  13. ERGOCALCIFEROL [Concomitant]

REACTIONS (14)
  - ATRIAL FIBRILLATION [None]
  - BLOOD PRESSURE SYSTOLIC INCREASED [None]
  - CARDIOMEGALY [None]
  - CHRONIC OBSTRUCTIVE PULMONARY DISEASE [None]
  - CONDITION AGGRAVATED [None]
  - CORONARY ARTERY STENOSIS [None]
  - DIARRHOEA [None]
  - DYSPNOEA [None]
  - HYPOCALCAEMIA [None]
  - HYPOKALAEMIA [None]
  - HYPOMAGNESAEMIA [None]
  - INTERNATIONAL NORMALISED RATIO INCREASED [None]
  - PLATELET COUNT INCREASED [None]
  - WHITE BLOOD CELL COUNT INCREASED [None]
